FAERS Safety Report 23737825 (Version 3)
Quarter: 2024Q4

REPORT INFORMATION
  Report Type: Spontaneous
  Country: FR (occurrence: FR)
  Receive Date: 20240412
  Receipt Date: 20241119
  Transmission Date: 20250115
  Serious: Yes (Other)
  Sender: PFIZER
  Company Number: FR-PFIZER INC-PV202400046650

PATIENT
  Age: 15 Year
  Sex: Male
  Weight: 52 kg

DRUGS (2)
  1. OXBRYTA [Suspect]
     Active Substance: VOXELOTOR
     Indication: Haemolytic anaemia
     Dosage: 1500 MG, DAILY
     Dates: start: 20231122
  2. FOLIC ACID [Concomitant]
     Active Substance: FOLIC ACID
     Indication: Anaemia
     Dosage: 5 MG, 2X/DAY
     Dates: start: 20080807

REACTIONS (5)
  - Acute chest syndrome [Unknown]
  - Sickle cell anaemia with crisis [Unknown]
  - Drug ineffective [Unknown]
  - Fatigue [Unknown]
  - Pain [Unknown]
